FAERS Safety Report 8178689-3 (Version None)
Quarter: 2012Q1

REPORT INFORMATION
  Report Type: 
  Country: None (occurrence: None)
  Receive Date: 20120301
  Receipt Date: 20120222
  Transmission Date: 20120608
  Serious: Yes (Hospitalization)
  Sender: FDA-Public Use
  Company Number: CH-ASTRAZENECA-2012SE12172

PATIENT
  Age: 83 Year
  Sex: Male

DRUGS (5)
  1. METFORMIN HCL [Concomitant]
     Route: 048
  2. RAMIPRIL [Concomitant]
     Route: 048
  3. GALANTAMINE HYDROBROMIDE [Concomitant]
  4. GLIMEPIRID [Concomitant]
     Route: 048
  5. TENORMIN [Suspect]
     Route: 048
     Dates: end: 20111012

REACTIONS (2)
  - PRESYNCOPE [None]
  - BRADYCARDIA [None]
